FAERS Safety Report 8053942-2 (Version None)
Quarter: 2011Q4

REPORT INFORMATION
  Report Type: 
  Country: None (occurrence: None)
  Receive Date: 20111213
  Receipt Date: 20110922
  Transmission Date: 20120403
  Serious: No
  Sender: FDA-Public Use
  Company Number: 2011SP044937

PATIENT
  Age: 69 Year
  Sex: Female

DRUGS (9)
  1. LAMOTRIGINE [Concomitant]
  2. CRESTOR [Concomitant]
  3. PROZAC [Concomitant]
  4. SAPHRIS [Suspect]
     Indication: BIPOLAR DISORDER
     Dosage: 5 MG;QD;SL
     Route: 060
     Dates: start: 20110913, end: 20110922
  5. SAPHRIS [Suspect]
     Indication: DEPRESSION
     Dosage: 5 MG;QD;SL
     Route: 060
     Dates: start: 20110913, end: 20110922
  6. STALEVO 100 [Concomitant]
  7. COREG [Concomitant]
  8. MIRAPEX [Concomitant]
  9. SINEMET [Concomitant]

REACTIONS (3)
  - INAPPROPRIATE SCHEDULE OF DRUG ADMINISTRATION [None]
  - OEDEMA PERIPHERAL [None]
  - UNDERDOSE [None]
